FAERS Safety Report 21909807 (Version 1)
Quarter: 2023Q1

REPORT INFORMATION
  Report Type: Report from Study
  Country: IN (occurrence: None)
  Receive Date: 20230125
  Receipt Date: 20230125
  Transmission Date: 20230418
  Serious: Yes (Hospitalization)
  Sender: FDA-Public Use
  Company Number: IN-Eisai Medical Research-EC-2023-132105

PATIENT
  Age: 56 Year
  Sex: Male

DRUGS (3)
  1. LENVIMA [Suspect]
     Active Substance: LENVATINIB
     Indication: Hepatocellular carcinoma
     Route: 048
     Dates: start: 20210127, end: 202104
  2. LENVIMA [Suspect]
     Active Substance: LENVATINIB
     Dosage: 4MG AND 8MG ALTERNATE DAYS
     Route: 048
     Dates: start: 20210412, end: 20220128
  3. LENVIMA [Suspect]
     Active Substance: LENVATINIB
     Dosage: 4MG AND 8MG ALTERNATE DAYS
     Route: 048
     Dates: start: 2022, end: 20230102

REACTIONS (6)
  - Anuria [Recovering/Resolving]
  - Blood albumin decreased [Recovering/Resolving]
  - Tongue haemorrhage [Recovering/Resolving]
  - Abdominal pain upper [Unknown]
  - Back pain [Unknown]
  - Hypotension [Unknown]

NARRATIVE: CASE EVENT DATE: 20230101
